FAERS Safety Report 9287078 (Version 1)
Quarter: 2013Q2

REPORT INFORMATION
  Report Type: Spontaneous
  Country: US (occurrence: None)
  Receive Date: 20130508
  Receipt Date: 20130508
  Transmission Date: 20140414
  Serious: Yes (Hospitalization)
  Sender: FDA-Public Use
  Company Number: VAL_02506_2013

PATIENT
  Age: 65 Year
  Sex: Male
  Weight: 70.7 kg

DRUGS (5)
  1. METOPROLOL TARTRATE [Suspect]
     Indication: CORONARY ARTERY DISEASE
     Dosage: (REGIMEN #1)
     Route: 048
     Dates: start: 20110924, end: 20110925
  2. ASPIRIN [Concomitant]
  3. BIVALIRUDIN [Concomitant]
  4. CLOPIDOGREL [Concomitant]
  5. BLINDED STUDY MEDICATION (CANGRELOR VS. CLOPIDOGREL VS. PLACEBO) [Concomitant]

REACTIONS (2)
  - Presyncope [None]
  - Myocardial infarction [None]
